FAERS Safety Report 4477422-6 (Version None)
Quarter: 2004Q4

REPORT INFORMATION
  Report Type: 
  Country: None (occurrence: None)
  Receive Date: 20041013
  Receipt Date: 20041004
  Transmission Date: 20050328
  Serious: Yes (Other)
  Sender: FDA-Public Use
  Company Number: 230020M04SWE

PATIENT
  Sex: Female

DRUGS (1)
  1. REBIF [Suspect]
     Indication: MULTIPLE SCLEROSIS
     Dates: end: 20040501

REACTIONS (3)
  - ANGINA PECTORIS [None]
  - EMBOLISM [None]
  - MYOCARDIAL ISCHAEMIA [None]
